FAERS Safety Report 18040986 (Version 1)
Quarter: 2020Q3

REPORT INFORMATION
  Report Type: Report from Study
  Country: None (occurrence: US)
  Receive Date: 20200717
  Receipt Date: 20200717
  Transmission Date: 20201103
  Serious: Yes (Other)
  Sender: FDA-Public Use
  Company Number: US-ABBVIE-20K-163-3481731-00

PATIENT
  Age: 63 Year
  Sex: Female

DRUGS (1)
  1. HUMIRA [Suspect]
     Active Substance: ADALIMUMAB
     Indication: COLITIS ULCERATIVE
     Dosage: CF
     Route: 058

REACTIONS (8)
  - Chest injury [Unknown]
  - Colitis [Unknown]
  - Iron deficiency anaemia [Unknown]
  - Therapeutic product effect incomplete [Unknown]
  - Myalgia [Recovered/Resolved]
  - Musculoskeletal chest pain [Unknown]
  - Fall [Recovered/Resolved]
  - Arthralgia [Recovered/Resolved]

NARRATIVE: CASE EVENT DATE: 202007
